FAERS Safety Report 6196248-9 (Version None)
Quarter: 2009Q2

REPORT INFORMATION
  Report Type: 
  Country: None (occurrence: None)
  Receive Date: 20090520
  Receipt Date: 20081030
  Transmission Date: 20091009
  Serious: No
  Sender: FDA-Public Use
  Company Number: US-ABBOTT-08P-163-0484856-00

PATIENT
  Sex: Female

DRUGS (4)
  1. MAVIK [Suspect]
     Indication: CARDIAC DISORDER
     Route: 048
     Dates: start: 20000101, end: 20070101
  2. MAVIK [Suspect]
     Route: 048
     Dates: start: 20070101, end: 20070101
  3. TRANDOLAPRIL [Suspect]
     Indication: CARDIAC DISORDER
     Route: 048
     Dates: start: 20070101, end: 20081005
  4. CARVEDILOL [Concomitant]
     Indication: CARDIAC DISORDER

REACTIONS (8)
  - BLOOD PRESSURE INCREASED [None]
  - DIARRHOEA [None]
  - DYSPHONIA [None]
  - HEARING IMPAIRED [None]
  - HYPERSENSITIVITY [None]
  - LIP SWELLING [None]
  - OCULAR HYPERAEMIA [None]
  - PARAESTHESIA [None]
